FAERS Safety Report 6411827-9 (Version None)
Quarter: 2009Q4

REPORT INFORMATION
  Report Type: 
  Country: None (occurrence: None)
  Receive Date: 20091023
  Receipt Date: 20091013
  Transmission Date: 20100525
  Serious: Yes (Other)
  Sender: FDA-Public Use
  Company Number: US-JNJFOC-20090800707

PATIENT
  Sex: Female
  Weight: 77 kg

DRUGS (1)
  1. REMICADE [Suspect]
     Indication: RHEUMATOID ARTHRITIS
     Route: 042

REACTIONS (5)
  - ADRENAL INSUFFICIENCY [None]
  - HYPOTENSION [None]
  - INFUSION RELATED REACTION [None]
  - SPINAL FUSION SURGERY [None]
  - SPINAL LAMINECTOMY [None]
